FAERS Safety Report 15904805 (Version 1)
Quarter: 2019Q1

REPORT INFORMATION
  Report Type: Report from Study
  Country: CN (occurrence: CN)
  Receive Date: 20190204
  Receipt Date: 20190204
  Transmission Date: 20190417
  Serious: Yes (Other)
  Sender: FDA-Public Use
  Company Number: CN-ROCHE-2252705

PATIENT

DRUGS (5)
  1. TRASTUZUMAB. [Suspect]
     Active Substance: TRASTUZUMAB
     Route: 041
  2. SHEN LIAN CAPSULE [Suspect]
     Active Substance: HERBALS
     Indication: HER-2 POSITIVE GASTRIC CANCER
     Dosage: 6 GRANULES
     Route: 048
  3. TRASTUZUMAB. [Suspect]
     Active Substance: TRASTUZUMAB
     Indication: HER-2 POSITIVE GASTRIC CANCER
     Route: 041
  4. OXALIPLATIN. [Suspect]
     Active Substance: OXALIPLATIN
     Indication: HER-2 POSITIVE GASTRIC CANCER
     Route: 041
  5. TEGAFUR [Suspect]
     Active Substance: TEGAFUR
     Indication: HER-2 POSITIVE GASTRIC CANCER
     Route: 048

REACTIONS (3)
  - Renal injury [Unknown]
  - Liver injury [Unknown]
  - Bone marrow failure [Unknown]
